FAERS Safety Report 6429450-9 (Version None)
Quarter: 2009Q4

REPORT INFORMATION
  Report Type: 
  Country: None (occurrence: None)
  Receive Date: 20091105
  Receipt Date: 20090608
  Transmission Date: 20100525
  Serious: No
  Sender: FDA-Public Use
  Company Number: US-ABBOTT-09P-163-0579142-00

PATIENT
  Sex: Male
  Weight: 63.56 kg

DRUGS (12)
  1. KALETRA [Suspect]
     Indication: HIV INFECTION
     Route: 048
     Dates: start: 20080801
  2. VIREAD [Concomitant]
     Indication: HIV INFECTION
     Route: 048
  3. EPZICOM [Concomitant]
     Indication: HIV INFECTION
     Route: 048
  4. FAMIAR [Concomitant]
     Indication: ORAL HERPES
     Route: 048
  5. FAMIAR [Concomitant]
     Indication: PROPHYLAXIS
  6. LOVAZA [Concomitant]
     Indication: HIGH DENSITY LIPOPROTEIN DECREASED
     Route: 048
  7. L-CARNITINE [Concomitant]
     Indication: MEDICAL DIET
     Route: 048
  8. COQ10 [Concomitant]
     Indication: MEDICAL DIET
     Dosage: FORM: 150 MILLIGRAMS
     Route: 048
  9. DHEA [Concomitant]
     Indication: MEDICAL DIET
     Route: 048
  10. VITAMIN D [Concomitant]
     Indication: MEDICAL DIET
     Dosage: FORM: 400 IU (INTERNATIONAL UNIT)
     Route: 048
  11. CALCIUM [Concomitant]
     Indication: MEDICAL DIET
     Route: 048
  12. MULTI-VITAMIN [Concomitant]
     Indication: MEDICAL DIET
     Route: 048

REACTIONS (3)
  - ABDOMINAL DISCOMFORT [None]
  - DIARRHOEA [None]
  - GASTRIC DISORDER [None]
